FAERS Safety Report 21087281 (Version 1)
Quarter: 2022Q3

REPORT INFORMATION
  Report Type: Spontaneous
  Country: BE (occurrence: BE)
  Receive Date: 20220715
  Receipt Date: 20220715
  Transmission Date: 20221027
  Serious: Yes (Hospitalization, Other)
  Sender: FDA-Public Use
  Company Number: BE-AMGEN-BELSP2022116757

PATIENT
  Age: 27 Year
  Sex: Female
  Weight: 34 kg

DRUGS (6)
  1. NEUPOGEN [Suspect]
     Active Substance: FILGRASTIM
     Indication: Prophylaxis
     Dosage: UNK
     Route: 065
  2. CARBOPLATIN [Concomitant]
     Active Substance: CARBOPLATIN
  3. PACLITAXEL [Concomitant]
     Active Substance: PACLITAXEL
  4. ADRIAMYCIN [Concomitant]
     Active Substance: DOXORUBICIN HYDROCHLORIDE
  5. CYCLOPHOSPHAMIDE [Concomitant]
     Active Substance: CYCLOPHOSPHAMIDE
  6. ATEZOLIZUMAB [Concomitant]
     Active Substance: ATEZOLIZUMAB

REACTIONS (6)
  - Febrile neutropenia [Unknown]
  - Pancytopenia [Unknown]
  - Myelosuppression [Unknown]
  - Metastases to liver [Unknown]
  - Therapeutic product effect incomplete [Unknown]
  - Macrocytosis [Unknown]
